FAERS Safety Report 24452263 (Version 1)
Quarter: 2024Q4

REPORT INFORMATION
  Report Type: Spontaneous
  Country: US (occurrence: US)
  Receive Date: 20241017
  Receipt Date: 20241017
  Transmission Date: 20250114
  Serious: No
  Sender: SUNOVION
  Company Number: US-UROVANT SCIENCES GMBH-202402-URV-000149

PATIENT
  Sex: Male

DRUGS (1)
  1. GEMTESA [Suspect]
     Active Substance: VIBEGRON
     Indication: Prostatomegaly
     Dosage: 75 MG
     Route: 065

REACTIONS (2)
  - Product use in unapproved indication [Unknown]
  - Inability to afford medication [Unknown]
